FAERS Safety Report 8354594-4 (Version None)
Quarter: 2012Q2

REPORT INFORMATION
  Report Type: 
  Country: None (occurrence: None)
  Receive Date: 20120511
  Receipt Date: 20120502
  Transmission Date: 20120825
  Serious: Yes (Hospitalization, Other)
  Sender: FDA-Public Use
  Company Number: US-MERCK-1201USA00747

PATIENT
  Age: 55 Year
  Sex: Female

DRUGS (6)
  1. FOSAMAX [Suspect]
     Indication: OSTEOPENIA
     Route: 048
     Dates: start: 20010210, end: 20091201
  2. FOSAMAX PLUS D [Suspect]
     Indication: OSTEOPOROSIS
     Route: 048
     Dates: start: 20010210, end: 20091201
  3. FOSAMAX [Suspect]
     Route: 048
     Dates: start: 20020519, end: 20060901
  4. FOSAMAX [Suspect]
     Indication: OSTEOPOROSIS
     Route: 048
     Dates: start: 20010210, end: 20091201
  5. FOSAMAX PLUS D [Suspect]
     Indication: OSTEOPENIA
     Route: 048
     Dates: start: 20010210, end: 20091201
  6. FOSAMAX [Suspect]
     Route: 048
     Dates: start: 20020519, end: 20060901

REACTIONS (8)
  - GASTRITIS [None]
  - TOOTH DISORDER [None]
  - ANAEMIA POSTOPERATIVE [None]
  - HYPERTENSION [None]
  - BREAST CANCER [None]
  - FEMUR FRACTURE [None]
  - BENIGN BREAST NEOPLASM [None]
  - HYPERCHOLESTEROLAEMIA [None]
